FAERS Safety Report 4428778-1 (Version None)
Quarter: 2004Q3

REPORT INFORMATION
  Report Type: 
  Country: None (occurrence: None)
  Receive Date: 20040818
  Receipt Date: 20040611
  Transmission Date: 20050211
  Serious: No
  Sender: FDA-Public Use
  Company Number: US-BRISTOL-MYERS SQUIBB COMPANY-12612412

PATIENT
  Age: 61 Year
  Sex: Female

DRUGS (4)
  1. TEQUIN [Suspect]
     Indication: SINUSITIS
     Route: 048
     Dates: start: 20040521, end: 20040528
  2. DIOVAN [Concomitant]
  3. ZETIA [Concomitant]
  4. ASPIRIN [Concomitant]

REACTIONS (1)
  - TONGUE BLACK HAIRY [None]
